FAERS Safety Report 7798379-6 (Version None)
Quarter: 2011Q4

REPORT INFORMATION
  Report Type: 
  Country: None (occurrence: None)
  Receive Date: 20111005
  Receipt Date: 20111003
  Transmission Date: 20120403
  Serious: Yes (Disabling)
  Sender: FDA-Public Use
  Company Number: JP-PFIZER INC-2011200910

PATIENT
  Age: 45 Year
  Sex: Male

DRUGS (5)
  1. LYRICA [Suspect]
     Indication: PAIN IN EXTREMITY
     Dosage: 75 MG, 2X/DAY
     Route: 048
     Dates: start: 20110714, end: 20110715
  2. LYRICA [Suspect]
     Indication: BACK PAIN
     Dosage: 75 MG, 1X/DAY
     Route: 048
     Dates: start: 20110716, end: 20110803
  3. METHYCOBAL [Concomitant]
     Indication: HYPOAESTHESIA
     Dosage: 500 MG, 2X/DAY
     Route: 048
     Dates: start: 20110721, end: 20110804
  4. METHYCOBAL [Concomitant]
  5. METHYCOBAL [Concomitant]
     Indication: BACK PAIN

REACTIONS (2)
  - URINARY INCONTINENCE [None]
  - FAECAL INCONTINENCE [None]
